FAERS Safety Report 8870618 (Version 8)
Quarter: 2013Q3

REPORT INFORMATION
  Report Type: Spontaneous
  Country: GB (occurrence: GB)
  Receive Date: 20121023
  Receipt Date: 20130715
  Transmission Date: 20140515
  Serious: Yes (Congenital Anomaly)
  Sender: FDA-Public Use
  Company Number: GB-009507513-1210GBR010559

PATIENT
  Age: 20 Week
  Sex: Female
  Weight: 3.32 kg

DRUGS (6)
  1. ISENTRESS [Suspect]
     Dosage: 800 MG, QD
     Route: 064
     Dates: start: 20120907
  2. ZIAGEN [Suspect]
     Dosage: 600 MG, QD
     Route: 064
     Dates: start: 20120731, end: 20120906
  3. EPIVIR [Suspect]
     Dosage: 300 MG, QD
     Route: 064
     Dates: start: 20120731, end: 20120906
  4. KALETRA [Suspect]
     Dosage: 4 DF, QD
     Route: 064
     Dates: start: 20120731, end: 20120906
  5. TRUVADA [Suspect]
     Dosage: 1 DF, QD
     Route: 064
     Dates: start: 20120907
  6. ALUVIA [Suspect]
     Dosage: 4 DF, QD
     Route: 064
     Dates: start: 20120731, end: 20120906

REACTIONS (2)
  - Renal dysplasia [Unknown]
  - Foetal exposure during pregnancy [Recovered/Resolved]
